FAERS Safety Report 21737219 (Version 2)
Quarter: 2023Q1

REPORT INFORMATION
  Report Type: Spontaneous
  Country: FR (occurrence: FR)
  Receive Date: 20221216
  Receipt Date: 20230123
  Transmission Date: 20230418
  Serious: Yes (Hospitalization, Other)
  Sender: FDA-Public Use
  Company Number: FR-AMGEN-FRASP2022213146

PATIENT
  Age: 31 Year
  Sex: Female

DRUGS (2)
  1. DARBEPOETIN ALFA [Suspect]
     Active Substance: DARBEPOETIN ALFA
     Indication: Anaemia
     Dosage: 200 MICROGRAM, QWK
     Route: 065
  2. IRON [Concomitant]
     Active Substance: IRON
     Indication: Anaemia
     Dosage: 200 MILLIGRAM, QMO
     Route: 040

REACTIONS (1)
  - Haemoperitoneum [Recovered/Resolved]
